FAERS Safety Report 18092633 (Version 4)
Quarter: 2020Q3

REPORT INFORMATION
  Report Type: Spontaneous
  Country: US (occurrence: US)
  Receive Date: 20200730
  Receipt Date: 20200916
  Transmission Date: 20201103
  Serious: Yes (Death, Hospitalization, Other)
  Sender: FDA-Public Use
  Company Number: US-KARYOPHARM THERAPEUTICS, INC.-2020KPT000811

PATIENT

DRUGS (4)
  1. GABAPENTIN. [Concomitant]
     Active Substance: GABAPENTIN
     Indication: BACK PAIN
     Dosage: UNK
  2. OXYCODONE [Concomitant]
     Active Substance: OXYCODONE
     Indication: BACK PAIN
     Dosage: UNK
  3. XPOVIO [Suspect]
     Active Substance: SELINEXOR
     Dosage: 20 MG, QOD
     Route: 048
     Dates: start: 202007, end: 20200910
  4. XPOVIO [Suspect]
     Active Substance: SELINEXOR
     Indication: PLASMA CELL MYELOMA
     Dosage: 80 MG, 2X/WEEK
     Route: 048
     Dates: start: 20200718

REACTIONS (12)
  - Nausea [Unknown]
  - Death [Fatal]
  - Fatigue [Unknown]
  - Decreased appetite [Unknown]
  - Asthenia [Unknown]
  - Dehydration [Not Recovered/Not Resolved]
  - Depressed mood [Unknown]
  - Confusional state [Not Recovered/Not Resolved]
  - Anaemia [Unknown]
  - Nerve injury [Not Recovered/Not Resolved]
  - Loss of consciousness [Recovered/Resolved]
  - Thrombocytopenia [Unknown]

NARRATIVE: CASE EVENT DATE: 202007
